FAERS Safety Report 5060724-2 (Version None)
Quarter: 2006Q3

REPORT INFORMATION
  Report Type: 
  Country: None (occurrence: None)
  Receive Date: 20060725
  Receipt Date: 20060324
  Transmission Date: 20061208
  Serious: Yes (Hospitalization, Other)
  Sender: FDA-Public Use
  Company Number: US-AVENTIS-200612991US

PATIENT
  Sex: Female

DRUGS (9)
  1. KETEK [Suspect]
     Indication: SINUSITIS
     Route: 048
     Dates: start: 20060217, end: 20060305
  2. FLONASE [Concomitant]
     Dosage: DOSE: UNKNOWN
  3. ZYRTEC [Concomitant]
     Dosage: DOSE: UNKNOWN
  4. ALLEGRA [Concomitant]
     Dosage: DOSE: UNKNOWN
  5. VANCENASE AQ [Concomitant]
     Dosage: DOSE: UNKNOWN
  6. ADVAIR DISKUS 100/50 [Concomitant]
     Dosage: DOSE: UNKNOWN
  7. HYDROCHLOROTHIAZIDE [Concomitant]
     Dosage: DOSE: UNKNOWN
  8. LISINOPRIL [Concomitant]
     Dosage: DOSE: UNKNOWN
  9. ADVIL [Concomitant]
     Dosage: DOSE: UNKNOWN

REACTIONS (18)
  - ALANINE AMINOTRANSFERASE INCREASED [None]
  - ASPARTATE AMINOTRANSFERASE INCREASED [None]
  - BLOOD BILIRUBIN INCREASED [None]
  - CLOSTRIDIUM DIFFICILE COLITIS [None]
  - DIARRHOEA [None]
  - DYSPNOEA [None]
  - EOSINOPHIL COUNT INCREASED [None]
  - FATIGUE [None]
  - INTERNATIONAL NORMALISED RATIO ABNORMAL [None]
  - JAUNDICE [None]
  - MALAISE [None]
  - OEDEMA PERIPHERAL [None]
  - PNEUMONIA STAPHYLOCOCCAL [None]
  - PULMONARY CONGESTION [None]
  - PYREXIA [None]
  - RASH [None]
  - TRANSAMINASES INCREASED [None]
  - WHITE BLOOD CELL COUNT INCREASED [None]
